FAERS Safety Report 22596636 (Version 1)
Quarter: 2023Q2

REPORT INFORMATION
  Report Type: Spontaneous
  Country: US (occurrence: None)
  Receive Date: 20230613
  Receipt Date: 20230613
  Transmission Date: 20230722
  Serious: Yes (Hospitalization)
  Sender: FDA-Public Use
  Company Number: None

PATIENT
  Sex: Female

DRUGS (5)
  1. HUMIRA [Suspect]
     Active Substance: ADALIMUMAB
     Indication: Rheumatoid arthritis
     Route: 058
     Dates: start: 20191106
  2. AMITRIPTYLINE [Concomitant]
     Active Substance: AMITRIPTYLINE
  3. CELECOXIB [Concomitant]
     Active Substance: CELECOXIB
  4. LYRICA [Concomitant]
     Active Substance: PREGABALIN
  5. PROLIA [Concomitant]
     Active Substance: DENOSUMAB

REACTIONS (4)
  - Injection site reaction [None]
  - Surgery [None]
  - Therapy interrupted [None]
  - Pain [None]
